FAERS Safety Report 7159967-3 (Version None)
Quarter: 2010Q4

REPORT INFORMATION
  Report Type: 
  Country: None (occurrence: None)
  Receive Date: 20101214
  Receipt Date: 20101129
  Transmission Date: 20110411
  Serious: Yes (Hospitalization)
  Sender: FDA-Public Use
  Company Number: JP-GENENTECH-310928

PATIENT
  Sex: Male
  Weight: 64 kg

DRUGS (21)
  1. BLINDED PLACEBO [Suspect]
     Indication: DIABETIC RETINAL OEDEMA
     Dosage: UNK
     Route: 031
     Dates: start: 20091209
  2. BLINDED RANIBIZUMAB [Suspect]
     Indication: DIABETIC RETINAL OEDEMA
     Dosage: UNK
     Route: 031
     Dates: start: 20091209
  3. BIOFERMIN (LACTOBACTERIA/GLYCOBACTERIA) [Concomitant]
     Indication: PRODUCT USED FOR UNKNOWN INDICATION
     Dosage: UNK
     Dates: start: 20100202, end: 20100206
  4. PRIMPERAN TAB [Concomitant]
     Indication: PRODUCT USED FOR UNKNOWN INDICATION
     Dosage: UNK
     Dates: start: 20100202, end: 20100206
  5. ASVERIN [Concomitant]
     Indication: PRODUCT USED FOR UNKNOWN INDICATION
     Dosage: UNK
     Dates: start: 20100202, end: 20100310
  6. MUCODYNE [Concomitant]
     Indication: PRODUCT USED FOR UNKNOWN INDICATION
     Dosage: UNK
     Dates: start: 20100202, end: 20100310
  7. PERIACTIN [Concomitant]
     Indication: PRODUCT USED FOR UNKNOWN INDICATION
     Dosage: UNK
     Dates: start: 20100202, end: 20100310
  8. MIYA-BM [Concomitant]
     Indication: PRODUCT USED FOR UNKNOWN INDICATION
     Dosage: UNK
     Dates: start: 20100202, end: 20100206
  9. KETOPROFEN [Concomitant]
     Indication: PRODUCT USED FOR UNKNOWN INDICATION
     Dosage: UNK
     Dates: start: 20100202, end: 20100206
  10. CRAVIT [Concomitant]
     Indication: PRODUCT USED FOR UNKNOWN INDICATION
     Dosage: UNK
     Dates: start: 20100306, end: 20100310
  11. LIRANAFTATE [Concomitant]
     Indication: PRODUCT USED FOR UNKNOWN INDICATION
  12. KENACORT [Concomitant]
     Indication: PRODUCT USED FOR UNKNOWN INDICATION
  13. XYLOCAINE [Concomitant]
     Indication: PRODUCT USED FOR UNKNOWN INDICATION
  14. LOXONIN [Concomitant]
     Indication: PRODUCT USED FOR UNKNOWN INDICATION
  15. LOXOPROFEN [Concomitant]
     Indication: PRODUCT USED FOR UNKNOWN INDICATION
  16. MUCOSTA [Concomitant]
     Indication: PRODUCT USED FOR UNKNOWN INDICATION
  17. MYSLEE [Concomitant]
     Indication: PRODUCT USED FOR UNKNOWN INDICATION
  18. AMARYL [Concomitant]
     Indication: PRODUCT USED FOR UNKNOWN INDICATION
  19. METFORMIN HYDROCHLORIDE [Concomitant]
     Indication: PRODUCT USED FOR UNKNOWN INDICATION
  20. VOGLIBOSE [Concomitant]
     Indication: PRODUCT USED FOR UNKNOWN INDICATION
  21. CRESTOR [Concomitant]
     Indication: PRODUCT USED FOR UNKNOWN INDICATION

REACTIONS (2)
  - DIABETES MELLITUS INADEQUATE CONTROL [None]
  - MALAISE [None]
